FAERS Safety Report 14507032 (Version 2)
Quarter: 2018Q1

REPORT INFORMATION
  Report Type: Spontaneous
  Country: US (occurrence: US)
  Receive Date: 20180208
  Receipt Date: 20180328
  Transmission Date: 20180509
  Serious: No
  Sender: FDA-Public Use
  Company Number: US-TAIHO ONCOLOGY INC-EU-2018-00133

PATIENT
  Sex: Male
  Weight: 76.73 kg

DRUGS (1)
  1. LONSURF [Suspect]
     Active Substance: TIPIRACIL HYDROCHLORIDE\TRIFLURIDINE
     Indication: COLON CANCER
     Dosage: CYCLE 2 STARTED ON 12JAN2018
     Route: 048
     Dates: start: 20171215

REACTIONS (3)
  - Red blood cell count decreased [Unknown]
  - Nausea [Unknown]
  - Vomiting [Unknown]
